FAERS Safety Report 12552864 (Version 8)
Quarter: 2019Q1

REPORT INFORMATION
  Report Type: Spontaneous
  Country: JP (occurrence: JP)
  Receive Date: 20160713
  Receipt Date: 20190131
  Transmission Date: 20190417
  Serious: Yes (Other)
  Sender: FDA-Public Use
  Company Number: JP-AEGERION-AEGR001654

PATIENT

DRUGS (8)
  1. DEXALTIN [Concomitant]
     Active Substance: DEXAMETHASONE
     Indication: STOMATITIS
     Dosage: UNK
     Dates: start: 20131204, end: 20131217
  2. METRELEPTIN SHIONOGI [Suspect]
     Active Substance: METRELEPTIN
     Indication: LIPOATROPHY
     Dosage: 3.825 MG, QD
     Route: 058
     Dates: start: 20090509, end: 20130924
  3. MERCAZOLE [Concomitant]
     Active Substance: CARBIMAZOLE
     Indication: BASEDOW^S DISEASE
     Dosage: UNK
     Dates: start: 20140718, end: 20150529
  4. UTROGESTAN [Concomitant]
     Active Substance: PROGESTERONE
     Indication: PRODUCT USED FOR UNKNOWN INDICATION
     Dosage: UNK
     Dates: start: 20160410
  5. METRELEPTIN SHIONOGI [Suspect]
     Active Substance: METRELEPTIN
     Dosage: 3.825 MG, QD
     Route: 058
     Dates: start: 20130925
  6. FERROMIA [Concomitant]
     Active Substance: SODIUM FERROUS CITRATE
     Indication: PRODUCT USED FOR UNKNOWN INDICATION
     Dosage: UNK
     Dates: end: 20140822
  7. ESTRANA [Concomitant]
     Active Substance: ESTRADIOL
     Indication: PRODUCT USED FOR UNKNOWN INDICATION
     Dosage: UNK
     Dates: start: 20160220
  8. TENORMIN [Concomitant]
     Active Substance: ATENOLOL
     Indication: BASEDOW^S DISEASE
     Dosage: UNK
     Dates: start: 20140710, end: 20140801

REACTIONS (8)
  - Constipation [Recovering/Resolving]
  - Normal newborn [Unknown]
  - Basedow^s disease [Not Recovered/Not Resolved]
  - Gestational diabetes [Recovered/Resolved]
  - Stomatitis [Recovered/Resolved]
  - Maternal exposure during pregnancy [Unknown]
  - Infertility [Not Recovered/Not Resolved]
  - Maternal exposure during breast feeding [Unknown]

NARRATIVE: CASE EVENT DATE: 20131204
